FAERS Safety Report 4684013-0 (Version None)
Quarter: 2005Q2

REPORT INFORMATION
  Report Type: 
  Country: None (occurrence: None)
  Receive Date: 20050602
  Receipt Date: 20050121
  Transmission Date: 20051028
  Serious: No
  Sender: FDA-Public Use
  Company Number: USA050188960

PATIENT
  Age: 71 Year
  Sex: Female
  Weight: 105 kg

DRUGS (12)
  1. CYMBALTA [Suspect]
     Indication: DEPRESSION
     Dosage: 30 MG/2 DAY
     Dates: start: 20041201
  2. PROZAC [Suspect]
  3. HUMULIN N [Suspect]
     Dosage: 35 U DAY
  4. HUMALOG [Suspect]
  5. SYNTHROID [Concomitant]
  6. COREG [Concomitant]
  7. LEXAPRO [Concomitant]
  8. ZOCOR (SIMVASTATIN RATIOPHARM) [Concomitant]
  9. DIOVAN [Concomitant]
  10. ASPIRIN [Concomitant]
  11. DICYCLOMINE [Concomitant]
  12. LASIX [Concomitant]

REACTIONS (14)
  - ANXIETY [None]
  - ASTHENIA [None]
  - DEPRESSED MOOD [None]
  - DRY MOUTH [None]
  - FATIGUE [None]
  - FEELING ABNORMAL [None]
  - INCREASED APPETITE [None]
  - INCREASED UPPER AIRWAY SECRETION [None]
  - NEUROPATHY [None]
  - ORAL PAIN [None]
  - VISUAL DISTURBANCE [None]
  - VOMITING [None]
  - WEIGHT FLUCTUATION [None]
  - WEIGHT INCREASED [None]
